FAERS Safety Report 7291137-0 (Version None)
Quarter: 2011Q1

REPORT INFORMATION
  Report Type: 
  Country: None (occurrence: None)
  Receive Date: 20110214
  Receipt Date: 20110209
  Transmission Date: 20110831
  Serious: Yes (Hospitalization)
  Sender: FDA-Public Use
  Company Number: US-ABBOTT-10P-163-0665027-00

PATIENT
  Sex: Male
  Weight: 85.806 kg

DRUGS (3)
  1. TRILIPIX [Suspect]
     Indication: DYSLIPIDAEMIA
     Route: 048
     Dates: start: 20100515, end: 20100813
  2. INSULIN [Concomitant]
     Indication: DIABETES MELLITUS
  3. CRESTOR [Concomitant]
     Indication: DYSLIPIDAEMIA

REACTIONS (2)
  - PANCREATITIS ACUTE [None]
  - PANCREATIC NEUROENDOCRINE TUMOUR METASTATIC [None]
